FAERS Safety Report 8134822-0 (Version None)
Quarter: 2012Q1

REPORT INFORMATION
  Report Type: 
  Country: None (occurrence: None)
  Receive Date: 20120214
  Receipt Date: 20120210
  Transmission Date: 20120608
  Serious: Yes (Other)
  Sender: FDA-Public Use
  Company Number: US-PFIZER INC-2012037139

PATIENT
  Sex: Female
  Weight: 48.526 kg

DRUGS (2)
  1. ADVIL COLD AND SINUS [Suspect]
     Indication: OROPHARYNGEAL PAIN
     Dosage: 200/30 MG, THREE TIMES A DAY
     Route: 048
     Dates: start: 20120207, end: 20120201
  2. ADVIL COLD AND SINUS [Suspect]
     Indication: NASOPHARYNGITIS
     Dosage: 200/30 MG, TWO TIMES A DAY
     Route: 048
     Dates: start: 20120201

REACTIONS (4)
  - DYSPHAGIA [None]
  - FOREIGN BODY [None]
  - OROPHARYNGEAL PAIN [None]
  - TRACHEAL OBSTRUCTION [None]
